FAERS Safety Report 12074837 (Version 3)
Quarter: 2017Q2

REPORT INFORMATION
  Report Type: Spontaneous
  Country: US (occurrence: US)
  Receive Date: 20160212
  Receipt Date: 20170420
  Transmission Date: 20170829
  Serious: Yes (Other)
  Sender: FDA-Public Use
  Company Number: US-ELI_LILLY_AND_COMPANY-US201602004006

PATIENT
  Sex: Female

DRUGS (3)
  1. CYMBALTA [Suspect]
     Active Substance: DULOXETINE HYDROCHLORIDE
     Indication: PAIN
     Dosage: 30 MG, QD
     Route: 048
     Dates: start: 2012
  2. CYMBALTA [Suspect]
     Active Substance: DULOXETINE HYDROCHLORIDE
     Indication: DEPRESSION
     Dosage: 60 MG, QD
     Route: 048
     Dates: end: 2014
  3. CYMBALTA [Suspect]
     Active Substance: DULOXETINE HYDROCHLORIDE
     Indication: DIABETIC NEUROPATHY
     Dosage: 60 MG, QD
     Route: 048
     Dates: start: 20150203, end: 20160403

REACTIONS (38)
  - Drug withdrawal syndrome [Unknown]
  - Nausea [Unknown]
  - Hyperhidrosis [Unknown]
  - Dysphoria [Unknown]
  - Appetite disorder [Unknown]
  - Lethargy [Unknown]
  - Weight decreased [Unknown]
  - Weight increased [Unknown]
  - Asthenia [Unknown]
  - Mood swings [Unknown]
  - Suicidal ideation [Unknown]
  - Sleep disorder [Unknown]
  - Gait disturbance [Unknown]
  - Loss of consciousness [Unknown]
  - Tremor [Unknown]
  - Tinnitus [Unknown]
  - Dizziness [Unknown]
  - Depressed mood [Unknown]
  - Coordination abnormal [Unknown]
  - Disturbance in attention [Unknown]
  - Suicide attempt [Unknown]
  - Nightmare [Unknown]
  - Vertigo [Unknown]
  - Headache [Unknown]
  - Insomnia [Unknown]
  - Irritability [Unknown]
  - Decreased activity [Unknown]
  - Diarrhoea [Unknown]
  - Agitation [Unknown]
  - Photophobia [Unknown]
  - Fatigue [Unknown]
  - Vomiting [Unknown]
  - Confusional state [Unknown]
  - Sensory disturbance [Unknown]
  - Paraesthesia [Unknown]
  - Anxiety [Unknown]
  - Affect lability [Unknown]
  - Hypomania [Unknown]
